FAERS Safety Report 23251039 (Version 1)
Quarter: 2023Q4

REPORT INFORMATION
  Report Type: Report from Study
  Country: US (occurrence: US)
  Receive Date: 20231201
  Receipt Date: 20231201
  Transmission Date: 20240110
  Serious: Yes (Hospitalization, Other)
  Sender: FDA-Public Use
  Company Number: US-ALXN-A202308061AA

PATIENT
  Sex: Male

DRUGS (1)
  1. SOLIRIS [Suspect]
     Active Substance: ECULIZUMAB
     Indication: Myasthenia gravis
     Dosage: UNK
     Route: 065
     Dates: start: 20191003

REACTIONS (6)
  - Haematological infection [Unknown]
  - Nephrolithiasis [Unknown]
  - Kidney infection [Unknown]
  - Weight increased [Unknown]
  - Cerebral disorder [Unknown]
  - Dyspnoea [Recovering/Resolving]
